FAERS Safety Report 13616591 (Version 1)
Quarter: 2017Q2

REPORT INFORMATION
  Report Type: Spontaneous
  Country: US (occurrence: US)
  Receive Date: 20170606
  Receipt Date: 20170606
  Transmission Date: 20170830
  Serious: Yes (Hospitalization)
  Sender: FDA-Public Use
  Company Number: US-SA-2016SA097298

PATIENT
  Age: 72 Year
  Sex: Male

DRUGS (2)
  1. LANTUS SOLOSTAR [Suspect]
     Active Substance: INSULIN GLARGINE
     Indication: TYPE 2 DIABETES MELLITUS
     Dosage: DOSE:10 UNIT(S)
     Route: 065
     Dates: end: 20160504
  2. SOLOSTAR [Concomitant]
     Active Substance: DEVICE
     Dates: end: 20160504

REACTIONS (9)
  - Muscular weakness [Unknown]
  - Vision blurred [Unknown]
  - General physical health deterioration [Unknown]
  - Dysarthria [Unknown]
  - Off label use [Unknown]
  - Blood glucose decreased [Unknown]
  - Confusional state [Unknown]
  - Urinary incontinence [Unknown]
  - Malaise [Unknown]
